FAERS Safety Report 7356402-7 (Version None)
Quarter: 2011Q1

REPORT INFORMATION
  Report Type: 
  Country: None (occurrence: None)
  Receive Date: 20110316
  Receipt Date: 20110308
  Transmission Date: 20110831
  Serious: Yes (Other)
  Sender: FDA-Public Use
  Company Number: GB-ELI_LILLY_AND_COMPANY-GB201103002247

PATIENT
  Age: 43 Year
  Sex: Male
  Weight: 89 kg

DRUGS (6)
  1. BYETTA [Suspect]
     Dosage: UNK, UNKNOWN
     Dates: start: 20101222
  2. OMEPRAZOLE [Concomitant]
     Dates: start: 20101203, end: 20110221
  3. BYETTA [Suspect]
     Dosage: UNK, UNKNOWN
     Dates: end: 20110223
  4. SITAGLIPTIN [Concomitant]
     Dates: start: 20101203, end: 20101231
  5. GLICLAZIDE [Concomitant]
     Dates: start: 20101203, end: 20110221
  6. SIMVASTATIN [Concomitant]
     Dates: start: 20101203, end: 20110221

REACTIONS (2)
  - HYPOAESTHESIA ORAL [None]
  - VOMITING [None]
